FAERS Safety Report 7394900-0 (Version None)
Quarter: 2011Q2

REPORT INFORMATION
  Report Type: 
  Country: None (occurrence: None)
  Receive Date: 20110405
  Receipt Date: 20110325
  Transmission Date: 20111010
  Serious: Yes (Hospitalization)
  Sender: FDA-Public Use
  Company Number: B0708362A

PATIENT
  Sex: Male

DRUGS (4)
  1. ZOPHREN [Suspect]
     Dosage: 8MG PER DAY
     Route: 048
     Dates: start: 20101116
  2. FOLINATE CALCIUM [Suspect]
     Indication: COLON CANCER
     Dosage: 800MG SINGLE DOSE
     Route: 042
     Dates: start: 20101116, end: 20101116
  3. OXALIPLATIN [Suspect]
     Indication: COLON CANCER
     Dosage: 170MG SINGLE DOSE
     Route: 042
     Dates: start: 20101116, end: 20101116
  4. FLUOROURACIL [Suspect]
     Indication: COLON CANCER
     Route: 042
     Dates: start: 20101116, end: 20101116

REACTIONS (2)
  - MALAISE [None]
  - HYPERSENSITIVITY [None]
